FAERS Safety Report 9628409 (Version 1)
Quarter: 2013Q4

REPORT INFORMATION
  Report Type: Spontaneous
  Country: US (occurrence: US)
  Receive Date: 20131017
  Receipt Date: 20131017
  Transmission Date: 20140711
  Serious: No
  Sender: FDA-Public Use
  Company Number: US-PFIZER INC-2013293704

PATIENT
  Sex: Male
  Weight: 125 kg

DRUGS (2)
  1. DIFLUCAN [Suspect]
     Indication: FUNGAL INFECTION
     Dosage: 2 DF, YEARLY
     Route: 048
     Dates: start: 1983
  2. FLUCONAZOLE [Suspect]
     Indication: FUNGAL INFECTION
     Dosage: 2 DF, YEARLY
     Route: 048
     Dates: start: 2009

REACTIONS (1)
  - Genital rash [Not Recovered/Not Resolved]
